FAERS Safety Report 4732762-8 (Version None)
Quarter: 2005Q3

REPORT INFORMATION
  Report Type: 
  Country: None (occurrence: None)
  Receive Date: 20050803
  Receipt Date: 20050712
  Transmission Date: 20060218
  Serious: Yes (Hospitalization)
  Sender: FDA-Public Use
  Company Number: UA-GLAXOSMITHKLINE-B0387512A

PATIENT
  Age: 71 Year
  Sex: Male
  Weight: 79 kg

DRUGS (3)
  1. ROSIGLITAZONE [Suspect]
     Route: 048
     Dates: start: 20030401
  2. METFORMIN [Suspect]
     Route: 048
     Dates: start: 20031017
  3. GLIBENCLAMIDE [Concomitant]
     Dosage: 15MG PER DAY
     Route: 048
     Dates: start: 19990101

REACTIONS (3)
  - ABDOMINAL PAIN UPPER [None]
  - DYSPEPSIA [None]
  - GASTRIC ULCER [None]
